FAERS Safety Report 8474134 (Version 4)
Quarter: 2013Q3

REPORT INFORMATION
  Report Type: Spontaneous
  Country: US (occurrence: US)
  Receive Date: 20120323
  Receipt Date: 20130730
  Transmission Date: 20140515
  Serious: Yes (Hospitalization, Other)
  Sender: FDA-Public Use
  Company Number: US-AMGEN-USASP2012017201

PATIENT
  Age: 35 Year
  Sex: Female
  Weight: 46.71 kg

DRUGS (12)
  1. ENBREL [Suspect]
     Indication: RHEUMATOID ARTHRITIS
     Dosage: 50 MG, QWK
     Route: 058
     Dates: start: 2006
  2. ENBREL [Suspect]
     Dosage: UNK
  3. PREDNISONE [Concomitant]
     Dosage: 5 MG, QD
     Route: 048
  4. PREDNISONE [Concomitant]
     Dosage: 10 MG, QD
  5. PREDNISONE [Concomitant]
     Dosage: 15 MG, UNK
  6. PREDNISONE [Concomitant]
     Dosage: 20 MG, UNK
  7. VITAMINS           /90003601/ [Concomitant]
     Dosage: UNK UNK, QD
     Route: 048
  8. SULFASALAZINE [Concomitant]
     Dosage: 5 PILLLS DAILY
     Dates: end: 20120127
  9. VITAMIN D                          /00107901/ [Concomitant]
     Dosage: 2000 MG, QD
  10. FOLIC ACID [Concomitant]
     Dosage: 800 UNK, QD
  11. CALCIUM [Concomitant]
     Dosage: 2000 MG, QD
  12. DHA [Concomitant]
     Dosage: UNK UNK, QD

REACTIONS (4)
  - Premature delivery [Recovered/Resolved]
  - Premature labour [Recovered/Resolved]
  - Premature rupture of membranes [Recovered/Resolved]
  - Rheumatoid arthritis [Recovered/Resolved]
